FAERS Safety Report 19487670 (Version 3)
Quarter: 2021Q3

REPORT INFORMATION
  Report Type: Spontaneous
  Country: PY (occurrence: PY)
  Receive Date: 20210702
  Receipt Date: 20210709
  Transmission Date: 20211014
  Serious: Yes (Other)
  Sender: FDA-Public Use
  Company Number: PY-ROCHE-2859587

PATIENT

DRUGS (3)
  1. AVASTIN [Suspect]
     Active Substance: BEVACIZUMAB
     Indication: VITREOUS HAEMORRHAGE
  2. AVASTIN [Suspect]
     Active Substance: BEVACIZUMAB
     Indication: RETINAL DETACHMENT
     Dosage: 100MG/ 4ML?1 VIAL OF 4 ML OF CONCENTRATED SOLUTION FOR INTRAVENOUS INFUSION
     Route: 042
  3. AVASTIN [Suspect]
     Active Substance: BEVACIZUMAB
     Indication: VITRECTOMY
     Dosage: DOSE WAS NOT REPORTED. FREQUENCY: APPLICATION WAS PERFORMED 5 TO 7 DAYS BEFORE SURGERY AND AGAIN AFT
     Route: 050

REACTIONS (2)
  - Off label use [Unknown]
  - Post procedural haemorrhage [Unknown]
